FAERS Safety Report 21104654 (Version 1)
Quarter: 2022Q3

REPORT INFORMATION
  Report Type: Other
  Country: US (occurrence: None)
  Receive Date: 20220720
  Receipt Date: 20220720
  Transmission Date: 20221027
  Serious: Yes (Other)
  Sender: FDA-Public Use
  Company Number: US-ROCHE-2779732

PATIENT
  Age: 56 Year
  Sex: Male

DRUGS (1)
  1. OCREVUS [Suspect]
     Active Substance: OCRELIZUMAB
     Indication: Multiple sclerosis
     Dosage: THEN 800 MG EVERY 6 MONTHS
     Route: 065
     Dates: start: 20190211

REACTIONS (6)
  - Confusional state [Not Recovered/Not Resolved]
  - Attention deficit hyperactivity disorder [Unknown]
  - Adrenal insufficiency [Not Recovered/Not Resolved]
  - Panniculitis [Not Recovered/Not Resolved]
  - COVID-19 [Recovered/Resolved]
  - Off label use [Unknown]

NARRATIVE: CASE EVENT DATE: 20220301
